FAERS Safety Report 9255041 (Version 1)
Quarter: 2013Q2

REPORT INFORMATION
  Report Type: Spontaneous
  Country: TR (occurrence: None)
  Receive Date: 20130422
  Receipt Date: 20130422
  Transmission Date: 20140414
  Serious: Yes (Other)
  Sender: FDA-Public Use
  Company Number: TR-1197692

PATIENT
  Age: 3 Month
  Sex: Female

DRUGS (3)
  1. MYDFRIN 2.5% OPTHALMIC SOLUTION (PHENYLEHPHRINE 2.5%) [Suspect]
     Indication: OPHTHALMOLOGICAL EXAMINATION
     Route: 047
  2. CYCLOPENTOLATE 0.5% EYE DROPS [Suspect]
     Indication: OPHTHALMOLOGICAL EXAMINATION
     Route: 047
  3. KETAMINE [Concomitant]

REACTIONS (2)
  - Myoclonic epilepsy [None]
  - Blood sodium increased [None]
